FAERS Safety Report 23264299 (Version 1)
Quarter: 2023Q4

REPORT INFORMATION
  Report Type: Spontaneous
  Country: PT (occurrence: PT)
  Receive Date: 20231205
  Receipt Date: 20231205
  Transmission Date: 20240109
  Serious: Yes (Other)
  Sender: FDA-Public Use
  Company Number: None

PATIENT
  Age: 64 Year
  Sex: Female

DRUGS (1)
  1. OXALIPLATIN [Suspect]
     Active Substance: OXALIPLATIN
     Indication: Adenocarcinoma gastric
     Dosage: FORM OF ADMIN. CONCENTRATE FOR SOLUTION FOR INFUSION?ROUTE OF ADMIN. INTRAVENOUS (NOT OTHERWISE SPEC
     Route: 042
     Dates: start: 20231017, end: 20231017

REACTIONS (3)
  - Palmar erythema [Recovered/Resolved]
  - Drug hypersensitivity [Recovered/Resolved]
  - Feeling hot [Recovered/Resolved]

NARRATIVE: CASE EVENT DATE: 20231017
